FAERS Safety Report 7246504-8 (Version None)
Quarter: 2011Q1

REPORT INFORMATION
  Report Type: 
  Country: None (occurrence: None)
  Receive Date: 20110126
  Receipt Date: 20110113
  Transmission Date: 20110831
  Serious: Yes (Death)
  Sender: FDA-Public Use
  Company Number: US-MYLANLABS-2011S1001057

PATIENT
  Age: 44 Year
  Sex: Male

DRUGS (8)
  1. QUETIAPINE [Suspect]
     Route: 048
  2. CLONAZEPAM [Suspect]
     Route: 048
  3. LEVOTHYROXINE SODIUM [Concomitant]
     Route: 048
  4. OLANZAPINE [Suspect]
     Route: 048
  5. GABAPENTIN [Concomitant]
     Route: 048
  6. OMEPRAZOLE [Concomitant]
     Route: 048
  7. VALSARTAN [Concomitant]
     Route: 048
  8. PAROXETINE HCL [Suspect]
     Route: 048

REACTIONS (3)
  - HYPONATRAEMIA [None]
  - HYPOTENSION [None]
  - COMA [None]
